FAERS Safety Report 9621320 (Version 1)
Quarter: 2013Q4

REPORT INFORMATION
  Report Type: Spontaneous
  Country: US (occurrence: None)
  Receive Date: 20131011
  Receipt Date: 20131011
  Transmission Date: 20140711
  Serious: Yes (Life-Threatening, Other)
  Sender: FDA-Public Use
  Company Number: None

PATIENT
  Age: 60 Year
  Sex: Female
  Weight: 109 kg

DRUGS (10)
  1. ADCETRIS [Suspect]
     Indication: CHRONIC LYMPHOCYTIC LEUKAEMIA REFRACTORY
     Dosage: (1.8 MG/KG) OVER 30 MIN
     Route: 042
     Dates: start: 20130812, end: 20131007
  2. ACETAMINOPHEN [Concomitant]
  3. DIPHENHYDRAMINE [Concomitant]
  4. DEXAMETHASONE SODIUM [Concomitant]
  5. MEPERIDINE HCL [Concomitant]
  6. LORAZEPAM [Concomitant]
  7. SODIUM CHLORIDE [Concomitant]
  8. PROCHLORPERAZINE EDISYLATE [Concomitant]
  9. HEPARIN LOCK FLUSH [Concomitant]
  10. BRENTUXIMAB VEDOTIN [Concomitant]

REACTIONS (6)
  - Vomiting [None]
  - Chills [None]
  - Chest pain [None]
  - Flushing [None]
  - Hypersensitivity [None]
  - Blood pressure decreased [None]
